FAERS Safety Report 4628076-7 (Version None)
Quarter: 2005Q2

REPORT INFORMATION
  Report Type: 
  Country: None (occurrence: None)
  Receive Date: 20050406
  Receipt Date: 20050329
  Transmission Date: 20051028
  Serious: Yes (Other)
  Sender: FDA-Public Use
  Company Number: US-GLAXOSMITHKLINE-A0551849A

PATIENT
  Age: 73 Year
  Sex: Female
  Weight: 61.4 kg

DRUGS (1)
  1. ECOTRIN [Suspect]
     Indication: DRUG USE FOR UNKNOWN INDICATION
     Route: 048
     Dates: start: 19970101

REACTIONS (1)
  - MYOCARDIAL INFARCTION [None]
